FAERS Safety Report 6143213-3 (Version None)
Quarter: 2009Q2

REPORT INFORMATION
  Report Type: 
  Country: None (occurrence: None)
  Receive Date: 20090403
  Receipt Date: 20090325
  Transmission Date: 20091009
  Serious: Yes (Hospitalization, Other)
  Sender: FDA-Public Use
  Company Number: CH-GILEAD-2009-0020525

PATIENT
  Sex: Male

DRUGS (4)
  1. TRUVADA [Suspect]
     Indication: HIV INFECTION
     Route: 048
     Dates: start: 20050501, end: 20081023
  2. DARUNAVIR [Concomitant]
     Route: 048
     Dates: start: 20050501
  3. RITONAVIR [Concomitant]
     Route: 048
     Dates: start: 20050501
  4. ABACAVIR [Concomitant]
     Route: 048
     Dates: start: 20050501

REACTIONS (2)
  - OSTEONECROSIS [None]
  - OSTEOPOROSIS [None]
